FAERS Safety Report 16333350 (Version 2)
Quarter: 2020Q3

REPORT INFORMATION
  Report Type: Spontaneous
  Country: US (occurrence: US)
  Receive Date: 20190520
  Receipt Date: 20200831
  Transmission Date: 20201102
  Serious: Yes (Other)
  Sender: FDA-Public Use
  Company Number: US-GILEAD-2019-0407972

PATIENT
  Age: 62 Year
  Sex: Female
  Weight: 170 kg

DRUGS (22)
  1. IBUPROFEN. [Concomitant]
     Active Substance: IBUPROFEN
  2. MELOXICAM. [Concomitant]
     Active Substance: MELOXICAM
  3. PERMETHRIN. [Concomitant]
     Active Substance: PERMETHRIN
  4. GABAPENTIN. [Concomitant]
     Active Substance: GABAPENTIN
  5. NEXIUM [Concomitant]
     Active Substance: ESOMEPRAZOLE MAGNESIUM
  6. TIVICAY [Concomitant]
     Active Substance: DOLUTEGRAVIR SODIUM
  7. VITAMIN D3 [Concomitant]
     Active Substance: CHOLECALCIFEROL
  8. CITALOPRAM [Concomitant]
     Active Substance: CITALOPRAM HYDROBROMIDE
  9. DESCOVY [Concomitant]
     Active Substance: EMTRICITABINE\TENOFOVIR ALAFENAMIDE FUMARATE
  10. SUCRALFATE. [Concomitant]
     Active Substance: SUCRALFATE
  11. TRAMADOL. [Concomitant]
     Active Substance: TRAMADOL
  12. ATRIPLA [Suspect]
     Active Substance: EFAVIRENZ\EMTRICITABINE\TENOFOVIR DISOPROXIL FUMARATE
     Indication: HIV INFECTION
     Dosage: UNK
     Route: 048
     Dates: start: 20110105, end: 20160721
  13. CIPROFLOXACIN. [Concomitant]
     Active Substance: CIPROFLOXACIN
  14. LISINOPRIL. [Concomitant]
     Active Substance: LISINOPRIL
  15. SUMATRIPTAN. [Concomitant]
     Active Substance: SUMATRIPTAN
  16. HYDROXYZINE [Concomitant]
     Active Substance: HYDROXYZINE HYDROCHLORIDE
  17. LAMOTRIGINE. [Concomitant]
     Active Substance: LAMOTRIGINE
  18. LEVETIRACETAM. [Concomitant]
     Active Substance: LEVETIRACETAM
  19. MIRTAZAPINE. [Concomitant]
     Active Substance: MIRTAZAPINE
  20. CALCIUM [Concomitant]
     Active Substance: CALCIUM
  21. OMEPRAZOLE. [Concomitant]
     Active Substance: OMEPRAZOLE
  22. TIVION [Concomitant]

REACTIONS (10)
  - Osteoporosis [Not Recovered/Not Resolved]
  - Bone density decreased [Unknown]
  - Osteopenia [Not Recovered/Not Resolved]
  - Seizure [Unknown]
  - Pain [Not Recovered/Not Resolved]
  - Bone loss [Unknown]
  - Anxiety [Not Recovered/Not Resolved]
  - Anhedonia [Not Recovered/Not Resolved]
  - Fracture [Not Recovered/Not Resolved]
  - Emotional distress [Not Recovered/Not Resolved]

NARRATIVE: CASE EVENT DATE: 2010
